FAERS Safety Report 19132268 (Version 25)
Quarter: 2022Q2

REPORT INFORMATION
  Report Type: Spontaneous
  Country: GB (occurrence: GB)
  Receive Date: 20210414
  Receipt Date: 20220502
  Transmission Date: 20220721
  Serious: Yes (Hospitalization, Disabling, Other)
  Sender: FDA-Public Use
  Company Number: None

PATIENT
  Age: 24 Year
  Sex: Male

DRUGS (35)
  1. CITALOPRAM [Suspect]
     Active Substance: CITALOPRAM HYDROBROMIDE
     Indication: Ill-defined disorder
     Dosage: 10 MG INITIALLY
     Route: 048
     Dates: start: 201507, end: 201509
  2. CITALOPRAM [Suspect]
     Active Substance: CITALOPRAM HYDROBROMIDE
     Indication: Headache
     Dosage: 10 MG (INITIALLY)
     Route: 048
     Dates: start: 201507
  3. CITALOPRAM [Suspect]
     Active Substance: CITALOPRAM HYDROBROMIDE
     Dosage: 10 MG (UNIT DOSE)
     Route: 048
  4. CITALOPRAM [Suspect]
     Active Substance: CITALOPRAM HYDROBROMIDE
     Dosage: 10 MG (INITIALLY)
     Route: 048
     Dates: start: 20150715, end: 201509
  5. CITALOPRAM [Suspect]
     Active Substance: CITALOPRAM HYDROBROMIDE
     Dosage: 10 MG (UNIT DOSE)
     Route: 048
  6. CITALOPRAM [Suspect]
     Active Substance: CITALOPRAM HYDROBROMIDE
     Dosage: 10 MG (UNKNOWN)
     Route: 048
  7. CITALOPRAM [Suspect]
     Active Substance: CITALOPRAM HYDROBROMIDE
     Dosage: 10 MG (UNKNOWN)
     Route: 048
  8. CITALOPRAM [Suspect]
     Active Substance: CITALOPRAM HYDROBROMIDE
     Dosage: 10 MG (UNIT DOSE)
     Route: 048
  9. RISPERIDONE [Suspect]
     Active Substance: RISPERIDONE
     Indication: Ill-defined disorder
     Dosage: UNK (ORAL SOLUTION)
     Route: 048
  10. MIRTAZAPINE [Suspect]
     Active Substance: MIRTAZAPINE
     Indication: Antidepressant therapy
     Dosage: 7.5 MG, QD (7.5MG - UPTITRATED TO 45MG DAILY THEN REDUCED DOWN TO STOP)
     Route: 048
     Dates: start: 2014, end: 2015
  11. MIRTAZAPINE [Suspect]
     Active Substance: MIRTAZAPINE
     Indication: Aggression
     Dosage: 45 MG (7.5MG - UPTITRATED TO 45MG DAILY THEN REDUCED DOWN TO STOP)
     Route: 048
     Dates: start: 2014, end: 2015
  12. SERTRALINE [Suspect]
     Active Substance: SERTRALINE HYDROCHLORIDE
     Indication: Homicidal ideation
     Dosage: 100 MG
     Route: 048
     Dates: start: 2014
  13. SERTRALINE [Suspect]
     Active Substance: SERTRALINE HYDROCHLORIDE
     Indication: Antidepressant therapy
     Dosage: 50 MG, INITALLY
     Route: 048
     Dates: start: 2014
  14. SERTRALINE [Suspect]
     Active Substance: SERTRALINE HYDROCHLORIDE
     Dosage: 100 MG
     Route: 048
     Dates: start: 2014
  15. SERTRALINE [Suspect]
     Active Substance: SERTRALINE HYDROCHLORIDE
     Dosage: 50 MG
     Route: 048
     Dates: start: 20140615
  16. SERTRALINE [Suspect]
     Active Substance: SERTRALINE HYDROCHLORIDE
     Dosage: 100 MG
     Route: 048
     Dates: start: 20140615
  17. SERTRALINE [Suspect]
     Active Substance: SERTRALINE HYDROCHLORIDE
     Dosage: 50 MG (UNKNOWN)
     Route: 048
  18. SERTRALINE [Suspect]
     Active Substance: SERTRALINE HYDROCHLORIDE
     Dosage: 50 MG (UNKNOWN)
     Route: 048
  19. SERTRALINE [Suspect]
     Active Substance: SERTRALINE HYDROCHLORIDE
     Dosage: UNK
     Route: 065
  20. TEMAZEPAM [Suspect]
     Active Substance: TEMAZEPAM
     Indication: Poor quality sleep
     Dosage: 10 MG, QD (ORAL SOLUTION)
     Route: 048
  21. TEMAZEPAM [Suspect]
     Active Substance: TEMAZEPAM
     Indication: Headache
     Dosage: 10 MILLIGRAM, QD (ORAL SOLUTION)
     Route: 048
  22. TEMAZEPAM [Suspect]
     Active Substance: TEMAZEPAM
     Dosage: 10 MILLIGRAM, QD (ORAL SOLUTION)
     Route: 048
  23. TEMAZEPAM [Suspect]
     Active Substance: TEMAZEPAM
     Dosage: 10 MILLIGRAM, QD (ORAL SOLUTION)
     Route: 048
  24. TEMAZEPAM [Suspect]
     Active Substance: TEMAZEPAM
     Dosage: 10 MILLIGRAM, QD (ORAL SOLUTION)
     Route: 048
  25. ESCITALOPRAM [Suspect]
     Active Substance: ESCITALOPRAM OXALATE
     Indication: Antidepressant therapy
     Dosage: 10 MG, QD
     Route: 048
     Dates: start: 201507, end: 201509
  26. ESCITALOPRAM [Suspect]
     Active Substance: ESCITALOPRAM OXALATE
     Dosage: 10 MG, QD
     Route: 065
     Dates: end: 201509
  27. ESCITALOPRAM [Suspect]
     Active Substance: ESCITALOPRAM OXALATE
     Dosage: 10 MG, QD
     Route: 065
     Dates: start: 201509
  28. TRAZODONE [Suspect]
     Active Substance: TRAZODONE HYDROCHLORIDE
     Indication: Poor quality sleep
     Dosage: 100 MG (50 MILLIGRAM, UNK, 50MG INITAILLY 10INCREASED TO 0MG DAILY THEN REDUCED TO 50MG BEFORE STOPP
     Route: 048
     Dates: start: 2015, end: 201507
  29. TRAZODONE [Suspect]
     Active Substance: TRAZODONE HYDROCHLORIDE
     Indication: Antidepressant therapy
     Dosage: 100 MILLIGRAM, QD (100 MG, QD (INCREASED TO 100MG DAILY) TABLET
     Route: 048
     Dates: start: 2015, end: 201507
  30. TRAZODONE [Suspect]
     Active Substance: TRAZODONE HYDROCHLORIDE
     Dosage: 50 MILLIGRAM (50MG INITAILLY INCREASED TO 100MG DAILY THEN REDUCED TO 50MG BEFORE STOPPING)
     Route: 048
     Dates: start: 2015, end: 201507
  31. TRAZODONE [Suspect]
     Active Substance: TRAZODONE HYDROCHLORIDE
     Dosage: 50 MG, QD
     Route: 048
  32. TRAZODONE [Suspect]
     Active Substance: TRAZODONE HYDROCHLORIDE
     Dosage: 50 MG, QD
     Route: 048
  33. CIPRALEX [Suspect]
     Active Substance: ESCITALOPRAM OXALATE
     Indication: Antidepressant therapy
     Dosage: 10 MG, QD
     Route: 048
     Dates: start: 201507, end: 201509
  34. CIPRALEX [Suspect]
     Active Substance: ESCITALOPRAM OXALATE
     Dosage: UNK
     Route: 065
  35. CIPRALEX [Suspect]
     Active Substance: ESCITALOPRAM OXALATE
     Dosage: 10 MG, QD
     Route: 065
     Dates: start: 201509

REACTIONS (26)
  - Agitation [Unknown]
  - Suicidal ideation [Unknown]
  - Anger [Unknown]
  - Homicidal ideation [Unknown]
  - Mood swings [Unknown]
  - Loss of libido [Unknown]
  - Insomnia [Unknown]
  - Paranoia [Unknown]
  - Suicide attempt [Unknown]
  - Irritability [Unknown]
  - Intrusive thoughts [Unknown]
  - Hallucination, auditory [Unknown]
  - Hallucination, visual [Unknown]
  - Aggression [Unknown]
  - Psychotic disorder [Unknown]
  - Feeling abnormal [Unknown]
  - Tachyphrenia [Unknown]
  - Headache [Unknown]
  - Nausea [Unknown]
  - Confusional state [Unknown]
  - Amnesia [Unknown]
  - Sedation [Unknown]
  - Withdrawal syndrome [Unknown]
  - Product use in unapproved indication [Unknown]
  - Off label use [Unknown]
  - Somnolence [Unknown]
